FAERS Safety Report 19078415 (Version 1)
Quarter: 2021Q1

REPORT INFORMATION
  Report Type: Spontaneous
  Country: US (occurrence: US)
  Receive Date: 20210331
  Receipt Date: 20210331
  Transmission Date: 20210420
  Serious: Yes (Hospitalization)
  Sender: FDA-Public Use
  Company Number: None

PATIENT
  Age: 56 Year
  Sex: Female

DRUGS (5)
  1. PIQRAY [Suspect]
     Active Substance: ALPELISIB
     Indication: BREAST CANCER
     Route: 048
     Dates: start: 20210310, end: 20210324
  2. MULTIVITAMIN [Concomitant]
     Active Substance: VITAMINS
  3. CALTRATE [Concomitant]
     Active Substance: CALCIUM CARBONATE
  4. METOPROLOL SUCCINATE. [Concomitant]
     Active Substance: METOPROLOL SUCCINATE
  5. NEURONTIN [Concomitant]
     Active Substance: GABAPENTIN

REACTIONS (3)
  - Therapy interrupted [None]
  - Generalised oedema [None]
  - Rash pruritic [None]

NARRATIVE: CASE EVENT DATE: 20210324
